FAERS Safety Report 13448213 (Version 2)
Quarter: 2017Q2

REPORT INFORMATION
  Report Type: Spontaneous
  Country: US (occurrence: US)
  Receive Date: 20170417
  Receipt Date: 20170530
  Transmission Date: 20170830
  Serious: Yes (Hospitalization, Other)
  Sender: FDA-Public Use
  Company Number: US-OMEROS CORPORATION-2017OME00004

PATIENT
  Age: 81 Year
  Sex: Female

DRUGS (18)
  1. TETRACAINE. [Concomitant]
     Active Substance: TETRACAINE
  2. VISCOAT [Concomitant]
  3. VICODIN [Concomitant]
     Active Substance: ACETAMINOPHEN\HYDROCODONE BITARTRATE
  4. PROVISC [Concomitant]
  5. FLURBIPROFEN. [Concomitant]
     Active Substance: FLURBIPROFEN
  6. OMIDRIA [Suspect]
     Active Substance: KETOROLAC\PHENYLEPHRINE
     Indication: CATARACT OPERATION
     Dosage: UNK 4 ML IN ONE EYE FOR SURGERY
     Dates: start: 20170327, end: 20170327
  7. VERSED [Concomitant]
     Active Substance: MIDAZOLAM HYDROCHLORIDE
  8. BACTERIOSTATIC STERILE SALINE [Concomitant]
  9. ASPIRIN. [Concomitant]
     Active Substance: ASPIRIN
  10. DYAZIDE [Concomitant]
     Active Substance: HYDROCHLOROTHIAZIDE\TRIAMTERENE
  11. OSCAL [Concomitant]
     Active Substance: CALCIUM CARBONATE
  12. CYCLOPENTOLATE. [Concomitant]
     Active Substance: CYCLOPENTOLATE
  13. LOPRESSOR [Concomitant]
     Active Substance: METOPROLOL TARTRATE
  14. PHENYLEPHRINE [Concomitant]
     Active Substance: PHENYLEPHRINE\PHENYLEPHRINE HYDROCHLORIDE
  15. OMIDRIA [Suspect]
     Active Substance: KETOROLAC\PHENYLEPHRINE
     Indication: INTRAOCULAR LENS IMPLANT
  16. TROPICAMIDE. [Concomitant]
     Active Substance: TROPICAMIDE
  17. CARDURA [Concomitant]
     Active Substance: DOXAZOSIN MESYLATE
  18. MULTIVITAMIN [Concomitant]
     Active Substance: VITAMINS

REACTIONS (4)
  - Coronary artery stenosis [Recovered/Resolved]
  - Chest pain [Recovered/Resolved]
  - Coronary arterial stent insertion [Recovered/Resolved]
  - Electrocardiogram ST segment depression [Recovered/Resolved]

NARRATIVE: CASE EVENT DATE: 201703
